FAERS Safety Report 19954360 (Version 1)
Quarter: 2021Q4

REPORT INFORMATION
  Report Type: Spontaneous
  Country: FR (occurrence: FR)
  Receive Date: 20211014
  Receipt Date: 20211014
  Transmission Date: 20220304
  Serious: Yes (Hospitalization)
  Sender: FDA-Public Use
  Company Number: None

PATIENT
  Age: 74 Year
  Sex: Male
  Weight: 67 kg

DRUGS (5)
  1. MEKINIST [Suspect]
     Active Substance: TRAMETINIB DIMETHYL SULFOXIDE
     Indication: Metastatic malignant melanoma
     Dosage: 2 MG, QD
     Route: 048
     Dates: start: 20210415, end: 20210611
  2. TAFINLAR [Suspect]
     Active Substance: DABRAFENIB MESYLATE
     Indication: Metastatic malignant melanoma
     Dosage: 300 MG, QD (150MG*2/JOUR) (CUMULATIVE DOSE: 600 MG)
     Route: 048
     Dates: start: 20210415, end: 20210611
  3. DOLIPRANE [Concomitant]
     Active Substance: ACETAMINOPHEN
     Indication: Pain
     Dosage: 10 MG, QD
     Route: 048
     Dates: start: 20201216
  4. OXAZEPAM [Concomitant]
     Active Substance: OXAZEPAM
     Indication: Sleep disorder
     Dosage: 10 MG, QD
     Route: 048
     Dates: start: 20201216
  5. DULOXETINE HYDROCHLORIDE [Concomitant]
     Active Substance: DULOXETINE HYDROCHLORIDE
     Indication: Depression
     Dosage: 30 MG, QD
     Route: 048
     Dates: start: 20210415, end: 20210611

REACTIONS (2)
  - Hepatic cytolysis [Recovering/Resolving]
  - Cholestasis [Recovering/Resolving]

NARRATIVE: CASE EVENT DATE: 20210610
